FAERS Safety Report 5957115-6 (Version None)
Quarter: 2008Q4

REPORT INFORMATION
  Report Type: 
  Country: None (occurrence: None)
  Receive Date: 20081117
  Receipt Date: 20081117
  Transmission Date: 20090506
  Serious: Yes (Hospitalization)
  Sender: FDA-Public Use
  Company Number: None

PATIENT
  Age: 28 Year
  Sex: Female
  Weight: 120.7 kg

DRUGS (1)
  1. VANCOMYCIN [Suspect]
     Indication: BACTERAEMIA
     Dates: start: 20081105, end: 20081105

REACTIONS (3)
  - DRUG HYPERSENSITIVITY [None]
  - DRY SKIN [None]
  - SKIN EXFOLIATION [None]
